FAERS Safety Report 15336298 (Version 1)
Quarter: 2018Q3

REPORT INFORMATION
  Report Type: Report from Study
  Country: US (occurrence: US)
  Receive Date: 20180830
  Receipt Date: 20180830
  Transmission Date: 20181010
  Serious: Yes (Hospitalization)
  Sender: FDA-Public Use
  Company Number: US-ACTELION-A-NJ2018-175163

PATIENT
  Age: 71 Year
  Sex: Male

DRUGS (2)
  1. OPSUMIT [Suspect]
     Active Substance: MACITENTAN
     Indication: PULMONARY ARTERIAL HYPERTENSION
     Dosage: 10 MG, QD
     Route: 048
     Dates: start: 20180616, end: 20180731
  2. ADCIRCA [Concomitant]
     Active Substance: TADALAFIL

REACTIONS (9)
  - Therapy non-responder [Not Recovered/Not Resolved]
  - Hospice care [Unknown]
  - Left ventricular failure [Unknown]
  - Memory impairment [Unknown]
  - Feeling abnormal [Unknown]
  - Unevaluable event [Unknown]
  - Decreased activity [Unknown]
  - Mental impairment [Unknown]
  - Performance status decreased [Unknown]

NARRATIVE: CASE EVENT DATE: 201806
